FAERS Safety Report 4665399-X (Version None)
Quarter: 2005Q2

REPORT INFORMATION
  Report Type: 
  Country: None (occurrence: None)
  Receive Date: 20050517
  Receipt Date: 20050509
  Transmission Date: 20051028
  Serious: Yes (Other)
  Sender: FDA-Public Use
  Company Number: 2005072500

PATIENT
  Sex: Male
  Weight: 84.8226 kg

DRUGS (6)
  1. PROCARDIA XL [Suspect]
     Indication: HYPERTENSION
     Dosage: 90 MG (30 MG, TID), ORAL
     Route: 048
  2. ADALAT [Suspect]
     Indication: HYPERTENSION
     Dosage: 90 MG (90 MG, QD), ORAL
     Route: 048
     Dates: start: 20050101, end: 20050509
  3. ATACAND [Concomitant]
  4. LIPITOR [Concomitant]
  5. IBUPROFEN [Concomitant]
  6. DOXAZOSIN (DOXAZOSIN) [Concomitant]

REACTIONS (5)
  - BLOOD PRESSURE DECREASED [None]
  - ENDOSCOPY ABNORMAL [None]
  - INGUINAL HERNIA REPAIR [None]
  - INTESTINAL POLYP [None]
  - PHARMACEUTICAL PRODUCT COMPLAINT [None]
